FAERS Safety Report 8914487 (Version 6)
Quarter: 2015Q1

REPORT INFORMATION
  Report Type: Spontaneous
  Country: US (occurrence: US)
  Receive Date: 20121116
  Receipt Date: 20150303
  Transmission Date: 20150721
  Serious: Yes (Hospitalization, Disabling, Other)
  Sender: FDA-Public Use
  Company Number: US-009507513-1206USA04649

PATIENT
  Sex: Female
  Weight: 74.38 kg

DRUGS (3)
  1. FOSAMAX [Suspect]
     Active Substance: ALENDRONATE SODIUM
     Indication: OSTEOPOROSIS
     Dosage: 10 UNK, UNK
     Route: 048
     Dates: start: 20010112, end: 20010508
  2. FOSAMAX [Suspect]
     Active Substance: ALENDRONATE SODIUM
     Indication: OSTEOPENIA
     Dosage: 70 MG, UNK
     Route: 048
     Dates: start: 20010524
  3. BONIVA [Suspect]
     Active Substance: IBANDRONATE SODIUM
     Indication: OSTEOPOROSIS
     Dosage: 150 MG, UNK
     Route: 048
     Dates: start: 20060826, end: 20091102

REACTIONS (43)
  - Myocardial ischaemia [Unknown]
  - Femur fracture [Recovered/Resolved]
  - Cataract [Unknown]
  - Adverse event [Unknown]
  - Pubis fracture [Recovering/Resolving]
  - Haemorrhoids [Unknown]
  - Stress fracture [Not Recovered/Not Resolved]
  - Femur fracture [Recovering/Resolving]
  - Intramedullary rod insertion [Unknown]
  - Breast lump removal [Unknown]
  - Hypoxia [Unknown]
  - Vertebral wedging [Unknown]
  - Femur fracture [Not Recovered/Not Resolved]
  - Breast cancer stage I [Unknown]
  - Pulmonary granuloma [Unknown]
  - Chronic obstructive pulmonary disease [Unknown]
  - Cor pulmonale [Unknown]
  - Arthritis [Unknown]
  - Low turnover osteopathy [Not Recovered/Not Resolved]
  - Body height decreased [Unknown]
  - Cardiac murmur [Unknown]
  - Nephrotic syndrome [Unknown]
  - Spinal compression fracture [Unknown]
  - Stitch abscess [Unknown]
  - Radiotherapy to breast [Unknown]
  - Muscle spasms [Unknown]
  - Oedema peripheral [Not Recovered/Not Resolved]
  - Osteoporosis [Not Recovered/Not Resolved]
  - Myocardial infarction [Unknown]
  - Fractured sacrum [Recovering/Resolving]
  - Pulmonary hypertension [Unknown]
  - Pelvic venous thrombosis [Unknown]
  - Pericardial effusion [Unknown]
  - Thoracic vertebral fracture [Unknown]
  - Spinal osteoarthritis [Unknown]
  - Open reduction of fracture [Unknown]
  - Pulmonary calcification [Unknown]
  - Electrocardiogram ST-T change [Unknown]
  - Right ventricular failure [Unknown]
  - Contusion [Unknown]
  - Fall [Unknown]
  - Cardiac tamponade [Unknown]
  - Emphysema [Unknown]

NARRATIVE: CASE EVENT DATE: 2006
